FAERS Safety Report 10265493 (Version 1)
Quarter: 2014Q2

REPORT INFORMATION
  Report Type: Spontaneous
  Country: US (occurrence: US)
  Receive Date: 20140627
  Receipt Date: 20140627
  Transmission Date: 20141212
  Serious: No
  Sender: FDA-Public Use
  Company Number: US-009507513-1406USA013062

PATIENT
  Sex: Female
  Weight: 47.62 kg

DRUGS (1)
  1. NUVARING [Suspect]
     Dosage: UNK
     Dates: start: 200906

REACTIONS (2)
  - Medical device discomfort [Unknown]
  - Inappropriate schedule of drug administration [Unknown]
